FAERS Safety Report 18875722 (Version 2)
Quarter: 2021Q1

REPORT INFORMATION
  Report Type: Report from Study
  Country: US (occurrence: US)
  Receive Date: 20210210
  Receipt Date: 20210212
  Transmission Date: 20210420
  Serious: Yes (Hospitalization, Other)
  Sender: FDA-Public Use
  Company Number: US-JNJFOC-20201205230

PATIENT
  Age: 64 Year
  Sex: Female
  Weight: 73.2 kg

DRUGS (3)
  1. MACITENTAN [Suspect]
     Active Substance: MACITENTAN
     Indication: PULMONARY ARTERIAL HYPERTENSION
     Route: 048
     Dates: start: 20201124
  2. SELEXIPAG [Suspect]
     Active Substance: SELEXIPAG
     Indication: PRODUCT USED FOR UNKNOWN INDICATION
     Route: 065
     Dates: start: 202011
  3. ADCIRCA [Concomitant]
     Active Substance: TADALAFIL

REACTIONS (7)
  - Muscular weakness [Unknown]
  - Syncope [Unknown]
  - Limb injury [Unknown]
  - Dialysis [Unknown]
  - Pulmonary arterial hypertension [Unknown]
  - Hypoacusis [Unknown]
  - Fall [Unknown]

NARRATIVE: CASE EVENT DATE: 20201120
